FAERS Safety Report 21991655 (Version 1)
Quarter: 2023Q1

REPORT INFORMATION
  Report Type: Spontaneous
  Country: US (occurrence: None)
  Receive Date: 20230213
  Receipt Date: 20230213
  Transmission Date: 20230418
  Serious: Yes (unspecified)
  Sender: FDA-Public Use
  Company Number: None

PATIENT
  Age: 76 Year
  Sex: Male

DRUGS (4)
  1. ARTIFICIAL TEARS LUBRICANT EYE DROPS (CARBOXYMETHYLCELLULOSE SODIUM) [Suspect]
     Active Substance: CARBOXYMETHYLCELLULOSE SODIUM
     Indication: Dry eye
     Dosage: OTHER QUANTITY : DROP;?FREQUENCY : AS NEEDED; ?DURATION: YEARS?
     Route: 047
     Dates: start: 2020, end: 20230203
  2. NEXIUM [Concomitant]
     Active Substance: ESOMEPRAZOLE MAGNESIUM
  3. LOSARTAN [Concomitant]
     Active Substance: LOSARTAN
  4. VICTOZA [Concomitant]
     Active Substance: LIRAGLUTIDE

REACTIONS (4)
  - Conjunctivitis [None]
  - Culture positive [None]
  - Pseudomonas infection [None]
  - Pathogen resistance [None]

NARRATIVE: CASE EVENT DATE: 20230203
